FAERS Safety Report 9615519 (Version 1)
Quarter: 2013Q4

REPORT INFORMATION
  Report Type: Spontaneous
  Country: US (occurrence: None)
  Receive Date: 20131010
  Receipt Date: 20131010
  Transmission Date: 20140711
  Serious: Yes (Disabling)
  Sender: FDA-Public Use
  Company Number: None

PATIENT
  Age: 22 Year
  Sex: Female
  Weight: 49.9 kg

DRUGS (1)
  1. YAZ [Suspect]
     Indication: DYSMENORRHOEA
     Dosage: 1 PILL ONCE DAILY TAKEN BY MOUTH
     Route: 048

REACTIONS (12)
  - Alcohol intolerance [None]
  - Diarrhoea [None]
  - Nausea [None]
  - Constipation [None]
  - Abdominal pain upper [None]
  - Food allergy [None]
  - Food allergy [None]
  - Food allergy [None]
  - Food allergy [None]
  - Malaise [None]
  - Depression [None]
  - Hepatobiliary scan abnormal [None]
